FAERS Safety Report 4871191-3 (Version None)
Quarter: 2005Q4

REPORT INFORMATION
  Report Type: 
  Country: None (occurrence: None)
  Receive Date: 20051229
  Receipt Date: 20051214
  Transmission Date: 20060501
  Serious: Yes (Other)
  Sender: FDA-Public Use
  Company Number: 2005-DE-05476GD

PATIENT
  Sex: 0

DRUGS (4)
  1. ASPIRIN [Suspect]
     Indication: ANTIPLATELET THERAPY
  2. CILOSTAZOL [Suspect]
     Indication: ANTIPLATELET THERAPY
  3. CLOPIDOGREL BISULFATE [Suspect]
     Indication: ANTIPLATELET THERAPY
  4. CYTOSTATIC AGENT [Suspect]

REACTIONS (2)
  - ACUTE MYOCARDIAL INFARCTION [None]
  - THROMBOSIS IN DEVICE [None]
